FAERS Safety Report 11133466 (Version 2)
Quarter: 2015Q3

REPORT INFORMATION
  Report Type: Spontaneous
  Country: SE (occurrence: SE)
  Receive Date: 20150522
  Receipt Date: 20150709
  Transmission Date: 20151125
  Serious: Yes (Hospitalization)
  Sender: FDA-Public Use
  Company Number: SE-ASTRAZENECA-2015SE47233

PATIENT
  Age: 50 Year
  Sex: Male

DRUGS (5)
  1. LANTUS [Concomitant]
     Active Substance: INSULIN GLARGINE
  2. TOPAMAX [Concomitant]
     Active Substance: TOPIRAMATE
  3. INSULIN [Concomitant]
     Active Substance: INSULIN NOS
     Indication: TYPE 2 DIABETES MELLITUS
  4. FORXIGA [Suspect]
     Active Substance: DAPAGLIFLOZIN
     Indication: TYPE 2 DIABETES MELLITUS
     Route: 048
     Dates: start: 20141216, end: 20150430
  5. ERGENYL [Interacting]
     Active Substance: VALPROIC ACID
     Route: 065

REACTIONS (8)
  - Ketoacidosis [Recovered/Resolved]
  - Eating disorder [Unknown]
  - Drug interaction [Unknown]
  - Blood glucose decreased [Unknown]
  - Weight decreased [Unknown]
  - Insulin C-peptide decreased [Unknown]
  - Dehydration [Unknown]
  - Asthenia [Unknown]

NARRATIVE: CASE EVENT DATE: 20150430
